FAERS Safety Report 5468022-X (Version None)
Quarter: 2007Q3

REPORT INFORMATION
  Report Type: 
  Country: None (occurrence: None)
  Receive Date: 20070926
  Receipt Date: 20070920
  Transmission Date: 20080115
  Serious: Yes (Death)
  Sender: FDA-Public Use
  Company Number: US-ASTRAZENECA-2006UW22719

PATIENT
  Sex: Male
  Weight: 65.9 kg

DRUGS (1)
  1. SEROQUEL [Suspect]
     Dosage: CONTINUED UNTIL 2006 WHEN DECEASED
     Route: 048

REACTIONS (4)
  - ARRHYTHMIA [None]
  - ARTERIOSCLEROSIS [None]
  - ARTERIOSCLEROSIS CORONARY ARTERY [None]
  - HYPERGLYCAEMIA [None]
